FAERS Safety Report 22291061 (Version 1)
Quarter: 2023Q2

REPORT INFORMATION
  Report Type: Report from Study
  Country: EG (occurrence: EG)
  Receive Date: 20230506
  Receipt Date: 20230506
  Transmission Date: 20230721
  Serious: Yes (Other)
  Sender: FDA-Public Use
  Company Number: EG-002147023-NVSC2023EG091150

PATIENT
  Age: 37 Year
  Sex: Male

DRUGS (4)
  1. COSENTYX [Suspect]
     Active Substance: SECUKINUMAB
     Indication: Ankylosing spondylitis
     Dosage: 150 MG, QMO (1PEN EVERY MONTH)
     Route: 058
     Dates: start: 202102, end: 20221227
  2. COSENTYX [Suspect]
     Active Substance: SECUKINUMAB
     Indication: Psoriasis
  3. ARCOXIA [Concomitant]
     Active Substance: ETORICOXIB
     Indication: Analgesic therapy
     Dosage: 1 DOSAGE FORM (90), QD (BEFORE BED TIME)
     Route: 048
     Dates: start: 202012
  4. ARCOXIA [Concomitant]
     Active Substance: ETORICOXIB
     Dosage: 1 DOSAGE FORM (TAKES ONE TABLET EVERY OTHER DAY FOR MONTH AND SOMETIMES HE STOP IT FOR A WEEK)
     Route: 048

REACTIONS (14)
  - Ankylosing spondylitis [Not Recovered/Not Resolved]
  - Peripheral swelling [Not Recovered/Not Resolved]
  - Joint swelling [Recovering/Resolving]
  - Limb discomfort [Recovering/Resolving]
  - Gait inability [Recovering/Resolving]
  - Uveitis [Recovering/Resolving]
  - Visual impairment [Recovering/Resolving]
  - Vision blurred [Recovering/Resolving]
  - Inflammation [Recovering/Resolving]
  - Arthralgia [Unknown]
  - Condition aggravated [Unknown]
  - Musculoskeletal chest pain [Unknown]
  - Inappropriate schedule of product administration [Unknown]
  - Drug ineffective [Unknown]

NARRATIVE: CASE EVENT DATE: 20210201
